FAERS Safety Report 4576438-9 (Version None)
Quarter: 2005Q1

REPORT INFORMATION
  Report Type: 
  Country: None (occurrence: None)
  Receive Date: 20050209
  Receipt Date: 20050201
  Transmission Date: 20050727
  Serious: Yes (Death)
  Sender: FDA-Public Use
  Company Number: JP-MERCK-0502USA00508

PATIENT
  Age: 81 Year
  Sex: Male

DRUGS (7)
  1. COZAAR [Suspect]
     Indication: CARDIAC FAILURE
     Route: 048
     Dates: start: 20050108, end: 20050109
  2. ASPIRIN [Concomitant]
     Route: 048
     Dates: end: 20050116
  3. LANIRAPID [Concomitant]
     Route: 048
     Dates: end: 20050116
  4. GASTROM [Concomitant]
     Route: 048
     Dates: end: 20050116
  5. PEPCID [Concomitant]
     Route: 048
     Dates: end: 20050116
  6. LASIX [Concomitant]
     Route: 065
     Dates: end: 20050116
  7. ALDACTONE [Concomitant]
     Route: 048
     Dates: end: 20050116

REACTIONS (2)
  - CARDIAC VALVE DISEASE [None]
  - RASH [None]
